FAERS Safety Report 6829455-X (Version None)
Quarter: 2010Q3

REPORT INFORMATION
  Report Type: 
  Country: None (occurrence: None)
  Receive Date: 20100709
  Receipt Date: 20070309
  Transmission Date: 20110219
  Serious: No
  Sender: FDA-Public Use
  Company Number: US-PFIZER INC-2007020029

PATIENT
  Sex: Male
  Weight: 83.91 kg

DRUGS (3)
  1. CHANTIX [Suspect]
     Indication: SMOKING CESSATION THERAPY
     Dates: start: 20070302
  2. PIROXICAM [Suspect]
     Indication: EPICONDYLITIS
     Dates: start: 20070101, end: 20070308
  3. ZOCOR [Concomitant]
     Indication: BLOOD CHOLESTEROL

REACTIONS (2)
  - ABNORMAL DREAMS [None]
  - MIDDLE INSOMNIA [None]
